FAERS Safety Report 11049375 (Version 4)
Quarter: 2016Q2

REPORT INFORMATION
  Report Type: Spontaneous
  Country: US (occurrence: US)
  Receive Date: 20150420
  Receipt Date: 20160502
  Transmission Date: 20160815
  Serious: Yes (Other)
  Sender: FDA-Public Use
  Company Number: US-BAYER-2015-129699

PATIENT
  Age: 29 Year
  Sex: Female
  Weight: 58.96 kg

DRUGS (1)
  1. MIRENA [Suspect]
     Active Substance: LEVONORGESTREL
     Indication: CONTRACEPTION
     Dosage: 20 MCG/24HR, CONT
     Route: 015
     Dates: start: 20110808, end: 20130531

REACTIONS (13)
  - Panic reaction [None]
  - Pain [None]
  - Device issue [None]
  - Abortion spontaneous incomplete [None]
  - Injury [None]
  - Emotional distress [None]
  - Device dislocation [None]
  - Abdominal pain lower [None]
  - Pregnancy with contraceptive device [None]
  - Depression [None]
  - Genital haemorrhage [None]
  - Uterine perforation [None]
  - Drug ineffective [None]

NARRATIVE: CASE EVENT DATE: 201304
